FAERS Safety Report 10016713 (Version 1)
Quarter: 2014Q1

REPORT INFORMATION
  Report Type: Spontaneous
  Country: US (occurrence: US)
  Receive Date: 20140318
  Receipt Date: 20140318
  Transmission Date: 20141002
  Serious: Yes (Death, Other)
  Sender: FDA-Public Use
  Company Number: PHHY2014US028917

PATIENT
  Age: 65 Year
  Sex: Male

DRUGS (17)
  1. ETHAMBUTOL [Suspect]
     Indication: MYCOBACTERIUM TUBERCULOSIS COMPLEX TEST POSITIVE
  2. MOXIFLOXACIN [Suspect]
     Indication: MYCOBACTERIUM TUBERCULOSIS COMPLEX TEST POSITIVE
  3. RIFAMPICIN [Suspect]
     Indication: MYCOBACTERIUM TUBERCULOSIS COMPLEX TEST POSITIVE
  4. EPIRUBICIN [Suspect]
     Indication: HEPATOCELLULAR CARCINOMA
  5. COCAINE [Suspect]
  6. DIAMORPHINE HYDROCHLORIDE [Suspect]
  7. MARIJUANA [Suspect]
  8. COLCHICINE [Concomitant]
     Dosage: 0.6 MG, ON ALTERNATE DAYS
  9. IBUPROFEN [Concomitant]
     Indication: SYNOVIAL CYST
  10. ACETAMINOPHEN W/HYDROCODONE [Concomitant]
     Indication: SYNOVIAL CYST
  11. TRAMADOL [Concomitant]
     Dosage: 50 MG, TID
  12. ALBUTEROL W/IPRATROPIUM [Concomitant]
     Dosage: 2 DF, TID
  13. OMEPRAZOLE [Concomitant]
     Dosage: 20 MG, BID
  14. AMLODIPINE BESYLATE [Concomitant]
     Dosage: 5 MG
  15. CIPROFLOXACIN [Concomitant]
     Indication: PROPHYLAXIS
  16. CEFTRIAXONE [Concomitant]
  17. VANCOMYCIN [Concomitant]

REACTIONS (4)
  - Hepatic failure [Fatal]
  - Tuberculosis [Unknown]
  - Liver disorder [Unknown]
  - Drug abuse [Unknown]
